FAERS Safety Report 7232753-1 (Version None)
Quarter: 2011Q1

REPORT INFORMATION
  Report Type: 
  Country: None (occurrence: None)
  Receive Date: 20110106
  Receipt Date: 20110103
  Transmission Date: 20110831
  Serious: Yes (Other)
  Sender: FDA-Public Use
  Company Number: 2010SP062433

PATIENT
  Age: 15 Year
  Sex: Female

DRUGS (1)
  1. AERIUS (DESLORATADINE /01398501/) [Suspect]
     Indication: URTICARIA
     Dosage: 1 DF; QD; PO
     Route: 048
     Dates: start: 20090101, end: 20101001

REACTIONS (1)
  - EPILEPSY [None]
